FAERS Safety Report 12827842 (Version 5)
Quarter: 2017Q4

REPORT INFORMATION
  Report Type: Report from Study
  Country: None (occurrence: AU)
  Receive Date: 20161007
  Receipt Date: 20171016
  Transmission Date: 20180320
  Serious: Yes (Hospitalization)
  Sender: FDA-Public Use
  Company Number: AU-ABBVIE-16P-008-1743869-00

PATIENT
  Age: 63 Year
  Sex: Female
  Weight: 55 kg

DRUGS (52)
  1. CYCLOPHOSPHAMIDE. [Suspect]
     Active Substance: CYCLOPHOSPHAMIDE
     Indication: NON-HODGKIN^S LYMPHOMA
     Dosage: THE MOST RECENT DOSE 1155 MG WAS ADMINISTERED ON 21/SEP/2016, AT 1515.
     Route: 042
     Dates: start: 20160721
  2. VALACICLOVIR [Concomitant]
     Active Substance: VALACYCLOVIR HYDROCHLORIDE
     Indication: PROPHYLAXIS
     Dates: start: 20160718
  3. TEMAZEPAM. [Concomitant]
     Active Substance: TEMAZEPAM
     Indication: PRODUCT USED FOR UNKNOWN INDICATION
     Dosage: AT NIGHT
     Dates: start: 20160725
  4. SULFAMETHOXAZOLE/TRIMETHOPRIM [Concomitant]
     Active Substance: SULFAMETHOXAZOLE\TRIMETHOPRIM
     Indication: PROPHYLAXIS
     Dates: start: 20160722
  5. LORATADINE. [Concomitant]
     Active Substance: LORATADINE
     Indication: PREMEDICATION
     Dates: start: 20160810, end: 20160810
  6. LORATADINE. [Concomitant]
     Active Substance: LORATADINE
     Dates: start: 20160921, end: 20160921
  7. METOCLOPRAMIDE. [Concomitant]
     Active Substance: METOCLOPRAMIDE
     Dates: start: 20161012, end: 20161012
  8. METOCLOPRAMIDE. [Concomitant]
     Active Substance: METOCLOPRAMIDE
     Dates: start: 20161102, end: 20161102
  9. NEULASTA [Concomitant]
     Active Substance: PEGFILGRASTIM
     Dates: start: 20160814, end: 20160814
  10. THIAMINE. [Concomitant]
     Active Substance: THIAMINE
     Indication: PRODUCT USED FOR UNKNOWN INDICATION
     Dates: start: 20160718
  11. GRANISETRON [Concomitant]
     Active Substance: GRANISETRON
     Dates: start: 20160831, end: 20160831
  12. HYDROCORTISONE. [Concomitant]
     Active Substance: HYDROCORTISONE
     Indication: PYREXIA
     Dates: start: 20160831, end: 20160831
  13. PARACETAMOL [Concomitant]
     Active Substance: ACETAMINOPHEN
     Indication: PREMEDICATION
     Dates: start: 20160831, end: 20160831
  14. RITUXIMAB. [Suspect]
     Active Substance: RITUXIMAB
     Indication: NON-HODGKIN^S LYMPHOMA
     Dosage: THE MOST RECENT DOSE 580 MG, WAS ADMINISTERED ON 21/SEP/2016
     Route: 042
     Dates: start: 20160720
  15. PREDNISOLONE. [Concomitant]
     Active Substance: PREDNISOLONE
     Indication: SYSTEMIC LUPUS ERYTHEMATOSUS
     Dates: start: 20160727, end: 20170510
  16. GRANISETRON [Concomitant]
     Active Substance: GRANISETRON
     Dates: start: 20161012, end: 20161012
  17. LORATADINE. [Concomitant]
     Active Substance: LORATADINE
     Dates: start: 20160831, end: 20160831
  18. HYDROCORTISONE. [Concomitant]
     Active Substance: HYDROCORTISONE
     Route: 042
     Dates: start: 20161102, end: 20161102
  19. PARACETAMOL [Concomitant]
     Active Substance: ACETAMINOPHEN
     Dates: start: 20161102, end: 20161102
  20. DOXORUBICIN [Suspect]
     Active Substance: DOXORUBICIN
     Indication: NON-HODGKIN^S LYMPHOMA
     Dosage: THE MOST RECENT DOSE 77 MG, WAS ADMINISTERED ON 21/SEP/2016, AT 1440.
     Route: 042
     Dates: start: 20160721
  21. PLAQUENIL [Concomitant]
     Active Substance: HYDROXYCHLOROQUINE SULFATE
     Indication: SYSTEMIC LUPUS ERYTHEMATOSUS
     Dates: start: 2006, end: 20170511
  22. HYDROCORTISONE. [Concomitant]
     Active Substance: HYDROCORTISONE
     Dates: start: 20160921, end: 20160921
  23. METOCLOPRAMIDE. [Concomitant]
     Active Substance: METOCLOPRAMIDE
     Dates: start: 20160921, end: 20160921
  24. TAZOCIN [Concomitant]
     Active Substance: PIPERACILLIN SODIUM\TAZOBACTAM SODIUM
     Indication: FEBRILE NEUTROPENIA
     Dates: start: 20160819, end: 20160822
  25. PARACETAMOL [Concomitant]
     Active Substance: ACETAMINOPHEN
     Indication: HEADACHE
     Dates: start: 20160921, end: 20160921
  26. NEULASTA [Concomitant]
     Active Substance: PEGFILGRASTIM
     Indication: INFECTION PROPHYLAXIS
     Dates: start: 20160925, end: 20160925
  27. NEULASTA [Concomitant]
     Active Substance: PEGFILGRASTIM
     Dates: start: 20160904, end: 20160904
  28. PREGABALIN. [Concomitant]
     Active Substance: PREGABALIN
     Indication: PAIN
     Dates: start: 2015
  29. GRANISETRON [Concomitant]
     Active Substance: GRANISETRON
     Dates: start: 20151102, end: 20161102
  30. LORATADINE. [Concomitant]
     Active Substance: LORATADINE
     Dates: start: 20161102, end: 20161102
  31. PARACETAMOL [Concomitant]
     Active Substance: ACETAMINOPHEN
     Dates: start: 20161012, end: 20161012
  32. ALLOPURINOL. [Concomitant]
     Active Substance: ALLOPURINOL
     Indication: PROPHYLAXIS
     Dates: start: 20160715
  33. HYDROCORTISONE. [Concomitant]
     Active Substance: HYDROCORTISONE
     Indication: PREMEDICATION
     Dates: start: 20160810, end: 20160810
  34. COLOXYL WITH SENNA [Concomitant]
     Active Substance: DOCUSATE\SENNOSIDES
     Indication: CONSTIPATION
     Dates: start: 20160820
  35. AUGMENTIN DUO FORTE [Concomitant]
     Active Substance: AMOXICILLIN\CLAVULANATE POTASSIUM
     Indication: FEBRILE NEUTROPENIA
     Dates: start: 20160823, end: 20160826
  36. NEULASTA [Concomitant]
     Active Substance: PEGFILGRASTIM
     Dates: start: 20161016, end: 20161016
  37. DONNATAB [Concomitant]
     Indication: PRODUCT USED FOR UNKNOWN INDICATION
     Dates: start: 20160927, end: 20160930
  38. VENETOCLAX. [Suspect]
     Active Substance: VENETOCLAX
     Indication: NON-HODGKIN^S LYMPHOMA
     Dosage: THE MOST RECENT DOSE 800MG, WAS ADMINISTERED ON 29/SEP/2016.
     Route: 048
     Dates: start: 20160724
  39. THYROXINE SODIUM [Concomitant]
     Active Substance: LEVOTHYROXINE SODIUM
     Indication: HYPOTHYROIDISM
     Dates: start: 2014
  40. HYDROCORTISONE. [Concomitant]
     Active Substance: HYDROCORTISONE
     Dates: start: 20161012, end: 20161012
  41. METOCLOPRAMIDE. [Concomitant]
     Active Substance: METOCLOPRAMIDE
     Indication: PREMEDICATION
     Dates: start: 20160810, end: 20160810
  42. TAZOCIN [Concomitant]
     Active Substance: PIPERACILLIN SODIUM\TAZOBACTAM SODIUM
     Dosage: TDS
     Dates: start: 20160819, end: 20160822
  43. PARACETAMOL [Concomitant]
     Active Substance: ACETAMINOPHEN
     Indication: PYREXIA
     Dates: start: 20160819, end: 20160820
  44. PARACETAMOL [Concomitant]
     Active Substance: ACETAMINOPHEN
     Dates: start: 20160810, end: 20160810
  45. PARACETAMOL [Concomitant]
     Active Substance: ACETAMINOPHEN
     Dates: start: 20161001, end: 20161001
  46. VINCRISTINE [Suspect]
     Active Substance: VINCRISTINE
     Indication: NON-HODGKIN^S LYMPHOMA
     Dosage: THE MOST RECENT DOSE, 2 MG, WAS ADMINISTERED ON 21/SEP/2016, AT 1500.
     Route: 042
     Dates: start: 20160721
  47. PREDNISONE. [Suspect]
     Active Substance: PREDNISONE
     Indication: NON-HODGKIN^S LYMPHOMA
     Dosage: THE MOST RECENT DOSE 100 MG, WAS ADMINSTERED ON 25/SEP/2016 (DAYS 1-5)
     Route: 048
     Dates: start: 20160721
  48. NEXIUM [Concomitant]
     Active Substance: ESOMEPRAZOLE MAGNESIUM
     Indication: GASTROOESOPHAGEAL REFLUX DISEASE
     Dates: start: 20160727
  49. GRANISETRON [Concomitant]
     Active Substance: GRANISETRON
     Indication: PREMEDICATION
     Dates: start: 20160810, end: 20160810
  50. GRANISETRON [Concomitant]
     Active Substance: GRANISETRON
     Dates: start: 20160921, end: 20160921
  51. LORATADINE. [Concomitant]
     Active Substance: LORATADINE
     Dates: start: 20161012, end: 20161012
  52. METOCLOPRAMIDE. [Concomitant]
     Active Substance: METOCLOPRAMIDE
     Dates: start: 20160831, end: 20160831

REACTIONS (1)
  - Stomatitis [Recovered/Resolved]

NARRATIVE: CASE EVENT DATE: 20160909
